FAERS Safety Report 21742131 (Version 1)
Quarter: 2022Q4

REPORT INFORMATION
  Report Type: Spontaneous
  Country: US (occurrence: US)
  Receive Date: 20221216
  Receipt Date: 20221216
  Transmission Date: 20230112
  Serious: No
  Sender: FDA-Public Use
  Company Number: US-MARINUS PHARMACEUTICALS, INC.-MAR2022000030

PATIENT
  Sex: Male

DRUGS (1)
  1. ZTALMY [Suspect]
     Active Substance: GANAXOLONE
     Indication: Product used for unknown indication
     Dosage: 12 MILLILITER, TID
     Route: 048
     Dates: start: 202208

REACTIONS (2)
  - Change in seizure presentation [Unknown]
  - Aggression [Unknown]

NARRATIVE: CASE EVENT DATE: 20220101
